FAERS Safety Report 5356772-5 (Version None)
Quarter: 2007Q2

REPORT INFORMATION
  Report Type: 
  Country: None (occurrence: None)
  Receive Date: 20070614
  Receipt Date: 20060719
  Transmission Date: 20071010
  Serious: No
  Sender: FDA-Public Use
  Company Number: US-ASTRAZENECA-2006UW14791

PATIENT
  Age: 56 Year
  Sex: Female
  Weight: 78.5 kg

DRUGS (3)
  1. ATACAND [Suspect]
     Route: 048
     Dates: start: 20060101
  2. NEXIUM [Concomitant]
     Route: 048
  3. HYDROCHLOROTHIAZIDE [Concomitant]
     Route: 048

REACTIONS (1)
  - ASTHMA [None]
